FAERS Safety Report 17723500 (Version 1)
Quarter: 2020Q2

REPORT INFORMATION
  Report Type: Report from Study
  Country: CA (occurrence: CA)
  Receive Date: 20200429
  Receipt Date: 20200429
  Transmission Date: 20200714
  Serious: Yes (Hospitalization)
  Sender: FDA-Public Use
  Company Number: CA-JNJFOC-20200208222

PATIENT
  Age: 72 Year
  Sex: Female
  Weight: 90.4 kg

DRUGS (2)
  1. STELARA [Suspect]
     Active Substance: USTEKINUMAB
     Indication: PSORIASIS
     Route: 058
     Dates: start: 20120427
  2. STELARA [Suspect]
     Active Substance: USTEKINUMAB

REACTIONS (11)
  - Social avoidant behaviour [Unknown]
  - Seizure [Unknown]
  - Cystitis [Unknown]
  - Diarrhoea [Unknown]
  - Malaise [Unknown]
  - Medication error [Unknown]
  - Alopecia [Not Recovered/Not Resolved]
  - Hallucination [Unknown]
  - Fall [Recovered/Resolved]
  - Head injury [Recovered/Resolved]
  - Inadequate diet [Unknown]

NARRATIVE: CASE EVENT DATE: 202001
